FAERS Safety Report 7452573-2 (Version None)
Quarter: 2011Q2

REPORT INFORMATION
  Report Type: 
  Country: None (occurrence: None)
  Receive Date: 20110425
  Receipt Date: 20110410
  Transmission Date: 20111010
  Serious: Yes (Congenital Anomaly)
  Sender: FDA-Public Use
  Company Number: 030679

PATIENT
  Sex: Female

DRUGS (5)
  1. FOLIC ACID [Concomitant]
  2. KEPPRA [Suspect]
     Dosage: (2500 MG  QD TRANSPLACENTAL)
     Route: 064
     Dates: end: 20110223
  3. PNEUMOCOCCAL CONJUGATE VACCINE [Concomitant]
  4. VARICELLA VACCINES [Concomitant]
  5. PRENATAL VITAMINS /01549301/ [Concomitant]

REACTIONS (4)
  - MATERNAL DRUGS AFFECTING FOETUS [None]
  - INJURY [None]
  - EYELID PTOSIS CONGENITAL [None]
  - NEUROMYOPATHY [None]
